FAERS Safety Report 5594820-8 (Version None)
Quarter: 2008Q1

REPORT INFORMATION
  Report Type: 
  Country: None (occurrence: None)
  Receive Date: 20080117
  Receipt Date: 20080115
  Transmission Date: 20080703
  Serious: Yes (Hospitalization)
  Sender: FDA-Public Use
  Company Number: B0503865A

PATIENT
  Age: 64 Year
  Sex: Male

DRUGS (10)
  1. CARVEDILOL [Suspect]
     Indication: CARDIAC FAILURE
     Route: 048
     Dates: start: 20070718, end: 20070724
  2. PROGRAF [Suspect]
     Dosage: 5MG PER DAY
     Route: 042
     Dates: start: 20070706, end: 20070801
  3. TRIFLUCAN [Suspect]
     Route: 042
     Dates: start: 20070716, end: 20070725
  4. CELLCEPT [Concomitant]
     Dates: start: 20070718
  5. VANCOMYCIN HCL [Concomitant]
  6. TAZOCILLINE [Concomitant]
  7. ACYCLOVIR [Concomitant]
  8. INIPOMP [Concomitant]
  9. DELURSAN [Concomitant]
  10. LOXEN [Concomitant]

REACTIONS (1)
  - HAEMOLYTIC ANAEMIA [None]
